FAERS Safety Report 5505347-3 (Version None)
Quarter: 2007Q4

REPORT INFORMATION
  Report Type: 
  Country: None (occurrence: None)
  Receive Date: 20071102
  Receipt Date: 20070718
  Transmission Date: 20080405
  Serious: Yes (Death, Hospitalization)
  Sender: FDA-Public Use
  Company Number: ES-ROCHE-505350

PATIENT
  Age: 69 Year
  Sex: Male
  Weight: 60 kg

DRUGS (27)
  1. CAPECITABINE [Suspect]
     Indication: GASTRIC CANCER
     Dosage: GIVEN TWICE DAILY ON DAYS ONE TO FOURTEEN OF EVERY THREE-WEEK-CYCLE (FROM PM OF DAY ONE TO AM OF DA+
     Route: 048
     Dates: start: 20070611, end: 20070625
  2. CISPLATIN [Suspect]
     Indication: GASTRIC CANCER
     Dosage: GIVEN ON DAY ONE OF EVERY THREE-WEEK-CYCLE. FORM REPORTED AS INFUSION.
     Route: 042
     Dates: start: 20070611, end: 20070611
  3. PLANTAGO OVATA [Concomitant]
  4. IRON [Concomitant]
     Dosage: REPORTED AS IRON (FE).
  5. SIMVASTATIN [Concomitant]
  6. BUFLOMEDIL [Concomitant]
  7. METFORMIN HCL [Concomitant]
  8. GLIPIZIDE [Concomitant]
  9. OMEPRAZOLE [Concomitant]
     Dosage: TDD ILLEGIBLE.
  10. VITAMIN B-12 [Concomitant]
  11. ONDANSETRON [Concomitant]
     Dates: start: 20070611
  12. METOCLOPRAMIDE [Concomitant]
     Dates: start: 20070611
  13. CIPROFLOXACIN HCL [Concomitant]
     Dates: start: 20070626, end: 20070701
  14. METAMIZOL [Concomitant]
     Dosage: REPORTED AS MEDAMIZOL.
     Dates: start: 20070626, end: 20070701
  15. MYCOSTATIN [Concomitant]
     Dates: start: 20070626, end: 20070701
  16. FENTANIL [Concomitant]
     Dosage: REPORTED AS PHENTANILE.
     Dates: start: 20070525, end: 20070701
  17. CIPROFLOXACIN HCL [Concomitant]
     Dates: start: 20070626, end: 20070701
  18. METOCLOPRAMIDE [Concomitant]
     Dates: start: 20070611, end: 20070705
  19. OMEPRAZOLE [Concomitant]
     Dates: end: 20070705
  20. METAMIZOL [Concomitant]
     Dates: start: 20070626, end: 20070705
  21. MYCOSTATIN [Concomitant]
     Dates: start: 20070626, end: 20070701
  22. PIPERACILLIN AND TAZOBACTAM [Concomitant]
     Dosage: TOTAL DAILY DOSE: 16 / 2 G
     Dates: start: 20070702, end: 20070703
  23. VITAMIN K [Concomitant]
     Dates: start: 20070704, end: 20070705
  24. METHYLPREDNISOLONE [Concomitant]
     Dates: start: 20070702, end: 20070705
  25. ATROVENT [Concomitant]
     Dates: start: 20070702, end: 20070705
  26. INSULIN [Concomitant]
     Dosage: TAKEN AS NEEDED.
     Dates: start: 20070702, end: 20070705
  27. FUROSEMIDE [Concomitant]
     Dates: start: 20070705, end: 20070707

REACTIONS (1)
  - SEPTIC SHOCK [None]
